FAERS Safety Report 4990552-5 (Version None)
Quarter: 2006Q2

REPORT INFORMATION
  Report Type: 
  Country: None (occurrence: None)
  Receive Date: 20060427
  Receipt Date: 20060414
  Transmission Date: 20061013
  Serious: Yes (Hospitalization)
  Sender: FDA-Public Use
  Company Number: 2006051156

PATIENT
  Sex: Female

DRUGS (10)
  1. GEODON [Suspect]
     Indication: MENTAL DISORDER
     Dosage: 40 MG (20 MG, 2 IN 1 D), ORAL
     Route: 048
  2. LITHIUM (LITHIUM) [Concomitant]
  3. BUSPIRONE HCL [Concomitant]
  4. TOPAMAX [Concomitant]
  5. BENADRYL [Concomitant]
  6. POTASSIUM (POTASSIUM) [Concomitant]
  7. LISINOPRIL [Concomitant]
  8. PERCOCET [Concomitant]
  9. VALIUM [Concomitant]
  10. TRAZODONE HCL [Concomitant]

REACTIONS (1)
  - SMALL INTESTINAL OBSTRUCTION [None]
